FAERS Safety Report 10490559 (Version 1)
Quarter: 2014Q4

REPORT INFORMATION
  Report Type: Report from Study
  Country: BR (occurrence: BR)
  Receive Date: 20141002
  Receipt Date: 20141002
  Transmission Date: 20150528
  Serious: Yes (Death, Other)
  Sender: FDA-Public Use
  Company Number: PHHY2014BR129021

PATIENT
  Age: 90 Year
  Sex: Female
  Weight: 70 kg

DRUGS (7)
  1. ROHYPNOL [Concomitant]
     Active Substance: FLUNITRAZEPAM
     Dosage: 1 DF, QHS
     Route: 048
  2. PROLOPA HBS [Concomitant]
     Indication: PARKINSON^S DISEASE
     Dosage: 2 DF, BID (100MG + 25MG)
     Route: 048
     Dates: start: 20140728
  3. CORONAR [Concomitant]
     Indication: CARDIAC DISORDER
     Dosage: 2 DF, PER DAY
     Route: 048
  4. AAS [Concomitant]
     Active Substance: ASPIRIN
     Indication: BLOOD DISORDER
     Dosage: 1 DF, QD (AT LUNCH)
     Route: 048
  5. ALDACTONE [Concomitant]
     Active Substance: SPIRONOLACTONE
     Indication: CARDIAC DISORDER
     Dosage: 1 DF, QD
     Route: 048
  6. EXELON [Suspect]
     Active Substance: RIVASTIGMINE TARTRATE
     Indication: DEMENTIA ALZHEIMER^S TYPE
     Dosage: 1 DF, BID (ONE IN THE MORNING AND ONE IN THE AFTERNOON)
     Route: 048
     Dates: start: 201407
  7. SINVASMAX [Concomitant]
     Indication: CARDIAC DISORDER
     Dosage: 1 DF, QHS
     Route: 048

REACTIONS (7)
  - Muscle spasms [Unknown]
  - Heart rate decreased [Unknown]
  - Blood pressure decreased [Unknown]
  - Malaise [Unknown]
  - Urinary tract infection [Recovered/Resolved]
  - Vomiting [Unknown]
  - Death [Fatal]

NARRATIVE: CASE EVENT DATE: 20140725
